FAERS Safety Report 17746887 (Version 1)
Quarter: 2020Q2

REPORT INFORMATION
  Report Type: Report from Study
  Country: DE (occurrence: DE)
  Receive Date: 20200505
  Receipt Date: 20200505
  Transmission Date: 20200714
  Serious: Yes (Other)
  Sender: FDA-Public Use
  Company Number: DE-ROCHE-2593740

PATIENT

DRUGS (1)
  1. ALTEPLASE. [Suspect]
     Active Substance: ALTEPLASE
     Indication: PORTAL VEIN THROMBOSIS
     Dosage: 1-2 MG PER HOUR
     Route: 065

REACTIONS (3)
  - Gastrointestinal necrosis [Unknown]
  - Intestinal perforation [Unknown]
  - Portal vein thrombosis [Unknown]
